FAERS Safety Report 5099028-0 (Version None)
Quarter: 2006Q3

REPORT INFORMATION
  Report Type: 
  Country: None (occurrence: None)
  Receive Date: 20060907
  Receipt Date: 20060828
  Transmission Date: 20061208
  Serious: Yes (Hospitalization)
  Sender: FDA-Public Use
  Company Number: US-ABBOTT-06P-163-0342431-00

PATIENT
  Sex: Male

DRUGS (5)
  1. VICODIN [Suspect]
     Indication: DRUG USE FOR UNKNOWN INDICATION
  2. ENBREL [Suspect]
     Indication: RHEUMATOID ARTHRITIS
     Route: 058
     Dates: start: 20060415
  3. ENBREL [Suspect]
     Route: 058
     Dates: start: 20060427
  4. PREDNISONE TAB [Suspect]
     Indication: DRUG USE FOR UNKNOWN INDICATION
  5. METHOTREXATE [Concomitant]
     Indication: DRUG USE FOR UNKNOWN INDICATION
     Route: 048
     Dates: start: 20060427

REACTIONS (3)
  - LIMB INJURY [None]
  - RHEUMATOID ARTHRITIS [None]
  - THROMBOSIS [None]
